FAERS Safety Report 5210002-3 (Version None)
Quarter: 2006Q4

REPORT INFORMATION
  Report Type: 
  Country: None (occurrence: None)
  Receive Date: 20061130
  Receipt Date: 20060714
  Transmission Date: 20070319
  Serious: Yes (Other)
  Sender: FDA-Public Use
  Company Number: 2005US000224

PATIENT
  Age: 53 Year
  Sex: Male

DRUGS (12)
  1. PROTOPIC [Suspect]
     Indication: DERMATITIS ATOPIC
     Dates: start: 20031218, end: 20040323
  2. ELIDEL [Suspect]
     Indication: DERMATITIS ATOPIC
     Dosage: TOPICAL
     Route: 061
     Dates: start: 20040314, end: 20040917
  3. CORTICOSTEROIDS [Concomitant]
  4. DOXEPIN HCL [Concomitant]
  5. KLARON (SULFACETAMIDE SODIUM) [Concomitant]
  6. LIDA-MANTLE (LIDOCAINE) [Concomitant]
  7. HYDROCORTISONE [Concomitant]
  8. DICLOXACILLIN [Concomitant]
  9. ELOCON [Concomitant]
  10. PSORCON (DIFLORASONE DIACETATE) [Concomitant]
  11. ZONALON (DOXEPIN HYDROCHLORIDE) [Concomitant]
  12. METROGEL [Concomitant]

REACTIONS (8)
  - CANDIDIASIS [None]
  - DERMATITIS INFECTED [None]
  - HERPES VIRUS INFECTION [None]
  - PERIPHERAL T-CELL LYMPHOMA UNSPECIFIED [None]
  - RASH ERYTHEMATOUS [None]
  - SERRATIA INFECTION [None]
  - SKIN NECROSIS [None]
  - STAPHYLOCOCCAL INFECTION [None]
